FAERS Safety Report 8299349-4 (Version None)
Quarter: 2012Q2

REPORT INFORMATION
  Report Type: 
  Country: None (occurrence: None)
  Receive Date: 20120419
  Receipt Date: 20120404
  Transmission Date: 20120825
  Serious: Yes (Hospitalization, Other)
  Sender: FDA-Public Use
  Company Number: JP-ROCHE-576448

PATIENT
  Sex: Male

DRUGS (46)
  1. ACTEMRA [Suspect]
     Dosage: DOSE INCREASED
     Route: 041
     Dates: start: 20080911, end: 20080911
  2. ACTEMRA [Suspect]
     Route: 041
     Dates: start: 20081107, end: 20081107
  3. ACTEMRA [Suspect]
     Route: 041
     Dates: start: 20081209, end: 20081222
  4. ACTEMRA [Suspect]
     Route: 041
     Dates: start: 20090323, end: 20090512
  5. PREDNISOLONE [Concomitant]
     Route: 048
  6. PREDNISOLONE [Concomitant]
     Route: 048
     Dates: start: 20080708, end: 20080827
  7. SODIUM BICARBONATE [Concomitant]
     Dosage: DOSAGE ADJUSTED: TAKEN AS NEEDED
     Route: 048
  8. RINDERON-VG [Concomitant]
     Dosage: DOSAGE ADJUSTED. TAKEN AS NEEDED.
     Route: 061
  9. TEGRETOL [Concomitant]
     Dosage: FORM: FINE GRANULE
     Route: 048
  10. SHIN-BIOFERMIN S [Concomitant]
     Route: 048
  11. GASMOTIN [Concomitant]
     Route: 048
  12. ACTEMRA [Suspect]
     Dosage: DOSE DECREASED
     Route: 041
     Dates: start: 20080704, end: 20080704
  13. ACTEMRA [Suspect]
     Dosage: DOSE INCREASED
     Route: 041
     Dates: start: 20080717, end: 20080717
  14. ACTEMRA [Suspect]
     Dosage: DOSE DECREASED
     Route: 041
     Dates: start: 20081009, end: 20081021
  15. ACTEMRA [Suspect]
     Route: 041
  16. ACTEMRA [Suspect]
     Route: 041
     Dates: start: 20090526, end: 20090526
  17. SUCRALFATE [Concomitant]
     Dosage: FORM: FINE GRANULE
     Route: 048
  18. HIRUDOID [Concomitant]
     Dosage: DOSAGE ADJUSTED. TAKEN AS NEEDED.
     Route: 061
  19. CLOBETASONE BUTYRATE [Concomitant]
     Dosage: DRUG NAME: KINDAVATE
     Route: 061
  20. TEGRETOL [Concomitant]
     Dosage: FORM: FINE GRANULE
     Route: 048
  21. ACTEMRA [Suspect]
     Dosage: DOSE INCREASED.
     Route: 041
     Dates: start: 20080811, end: 20080827
  22. PREDNISOLONE [Concomitant]
     Dosage: ROUTE: INTRAVENOUS (NOT OTHERWISE SPECIFIED)
     Route: 042
     Dates: start: 20080705, end: 20080707
  23. LAC-B [Concomitant]
     Dosage: FORM: FINE GRANULE
     Route: 048
  24. CALCIUM LACTATE [Concomitant]
     Route: 048
  25. ACTEMRA [Suspect]
     Dosage: DOSE INCREASED
     Route: 041
     Dates: start: 20080728, end: 20080728
  26. ACTEMRA [Suspect]
     Dosage: DOSE DECREASED
     Route: 041
     Dates: start: 20080926, end: 20080926
  27. CALCIUM POLYCARBOPHIL [Concomitant]
     Dosage: DRUG NAME: COLONEL FORM: FINE GRANULE
     Route: 048
  28. KENALOG [Concomitant]
     Dosage: DOSAGE ADJUSTED: TAKEN AS NEEDED. ROUTE: OROPHARINGEAL
     Route: 050
  29. ACTEMRA [Suspect]
     Dosage: DOSE INCREASED
     Route: 041
     Dates: start: 20080623, end: 20080623
  30. ACTEMRA [Suspect]
     Route: 041
     Dates: start: 20090123, end: 20090311
  31. ISODINE [Concomitant]
     Dosage: ROUTE: OROPHARINGEAL FORM: GARGLE DOSAGE ADJUSTED. TAKEN AS NEEDED
     Route: 050
  32. TEGRETOL [Concomitant]
     Dosage: FORM: FINE GRANULE
     Route: 048
     Dates: start: 20080710, end: 20080728
  33. DAI-KENCHU-TO [Concomitant]
     Route: 048
  34. SHIN-BIOFERMIN S [Concomitant]
     Route: 048
  35. FERRIC PYROPHOSPHATE [Concomitant]
     Dosage: DRUG NAME: INCREMIN
     Route: 048
  36. FELBINAC [Concomitant]
     Dosage: DRUG NAME: SELTOUCH DOSAGE ADJUSTED. TAKEN AS NEEDED. FORM: TAPE
     Route: 061
  37. DIAPP [Concomitant]
     Dosage: FORM: RECTAL SUPPOSITORY
     Route: 054
     Dates: start: 20080705, end: 20080709
  38. DAI-KENCHU-TO [Concomitant]
     Dosage: FORM: ORAL FORMULATION(NOT OTHERWISE SPECIFIED)
     Route: 048
     Dates: start: 20080716, end: 20081209
  39. ZADITEN [Concomitant]
     Route: 048
     Dates: start: 20080811, end: 20081009
  40. ACTEMRA [Suspect]
     Indication: JUVENILE ARTHRITIS
     Route: 041
     Dates: start: 20080610, end: 20080610
  41. ACTEMRA [Suspect]
     Route: 041
     Dates: start: 20081128, end: 20081128
  42. ACTEMRA [Suspect]
     Route: 041
  43. CALCIUM POLYCARBOPHIL [Concomitant]
     Route: 048
     Dates: start: 20080624, end: 20080704
  44. WHITE PETROLATUM [Concomitant]
     Dosage: DOSAGE ADJUSTED. TAKEN AS NEEDED.
     Route: 061
  45. POSTERISAN [Concomitant]
     Dosage: DOSAGE ADJUSTED. TAKEN AS NEEDED.
     Route: 061
  46. EKSALB [Concomitant]
     Route: 061

REACTIONS (13)
  - PYREXIA [None]
  - ILEUS [None]
  - UPPER RESPIRATORY TRACT INFLAMMATION [None]
  - ANASTOMOTIC STENOSIS [None]
  - IMPAIRED HEALING [None]
  - INFECTIOUS PERITONITIS [None]
  - GASTROINTESTINAL PERFORATION [None]
  - ABDOMINAL PAIN [None]
  - LARGE INTESTINAL ULCER [None]
  - ILEAL ULCER [None]
  - BLEPHARITIS [None]
  - DIARRHOEA [None]
  - ANASTOMOTIC ULCER [None]
